FAERS Safety Report 11995423 (Version 2)
Quarter: 2016Q1

REPORT INFORMATION
  Report Type: Spontaneous
  Country: PL (occurrence: PL)
  Receive Date: 20160203
  Receipt Date: 20160205
  Transmission Date: 20160526
  Serious: Yes (Hospitalization, Other)
  Sender: FDA-Public Use
  Company Number: PL-GLAXOSMITHKLINE-PL2016GSK010831

PATIENT
  Age: 29 Year
  Sex: Female

DRUGS (7)
  1. ACYCLOVIR. [Suspect]
     Active Substance: ACYCLOVIR
     Indication: PYREXIA
  2. CHLORCHINALDOL + METRONIDAZOLE [Suspect]
     Active Substance: CHLORQUINALDOL\METRONIDAZOLE
     Indication: APLASTIC ANAEMIA
     Route: 067
  3. AMOXICILLIN. [Suspect]
     Active Substance: AMOXICILLIN
     Indication: UPPER RESPIRATORY TRACT INFECTION
     Route: 048
  4. NYSTATIN. [Suspect]
     Active Substance: NYSTATIN
     Indication: ORAL FUNGAL INFECTION
  5. CYCLOSPORINE A [Suspect]
     Active Substance: CYCLOSPORINE
     Indication: APLASTIC ANAEMIA
     Dosage: 5 MG/KG, UNK
  6. PREDNISONE. [Suspect]
     Active Substance: PREDNISONE
     Indication: APLASTIC ANAEMIA
     Dosage: 20 MG, UNK
  7. POTASSIUM CHLORATE [Suspect]
     Active Substance: POTASSIUM CHLORATE
     Indication: APLASTIC ANAEMIA

REACTIONS (9)
  - Caesarean section [None]
  - Exposure during pregnancy [Unknown]
  - Amniocentesis abnormal [Unknown]
  - Live birth [Unknown]
  - Upper respiratory tract infection [Unknown]
  - Pyrexia [Unknown]
  - Neutropenia [Unknown]
  - Premature delivery [None]
  - Oral fungal infection [Unknown]
